FAERS Safety Report 9629350 (Version 1)
Quarter: 2013Q4

REPORT INFORMATION
  Report Type: Spontaneous
  Country: US (occurrence: US)
  Receive Date: 20131017
  Receipt Date: 20131017
  Transmission Date: 20140711
  Serious: No
  Sender: FDA-Public Use
  Company Number: US-ASTRAZENECA-2013SE60992

PATIENT
  Sex: Male

DRUGS (2)
  1. CRESTOR [Suspect]
     Route: 048
  2. PROTON PUMP INHIBITORS [Suspect]
     Route: 065

REACTIONS (3)
  - Neuropathy peripheral [Unknown]
  - Pernicious anaemia [Unknown]
  - Cataract [Unknown]
